FAERS Safety Report 9479812 (Version 1)
Quarter: 2013Q3

REPORT INFORMATION
  Report Type: Spontaneous
  Country: US (occurrence: US)
  Receive Date: 20130828
  Receipt Date: 20130828
  Transmission Date: 20140515
  Serious: Yes (Hospitalization)
  Sender: FDA-Public Use
  Company Number: US-AMGEN-KDL050844

PATIENT
  Age: 62 Year
  Sex: Male

DRUGS (4)
  1. ENBREL [Suspect]
     Indication: RHEUMATOID ARTHRITIS
     Dosage: 25 MG, 2 TIMES/WK
     Route: 058
     Dates: start: 20001013
  2. PREDNISONE [Concomitant]
     Dosage: UNK UNK, UNK
  3. VALDECOXIB [Concomitant]
     Dosage: UNK UNK, UNK
     Dates: start: 200307
  4. METHOTREXATE [Concomitant]
     Dosage: UNK UNK, UNK
     Dates: start: 200309

REACTIONS (7)
  - Septic shock [Unknown]
  - Staphylococcal bacteraemia [Unknown]
  - Injection site infection [Unknown]
  - Myalgia [Unknown]
  - Local swelling [Unknown]
  - Apheresis [Unknown]
  - Cerebrovascular accident [Unknown]
